FAERS Safety Report 23941956 (Version 2)
Quarter: 2024Q2

REPORT INFORMATION
  Report Type: Spontaneous
  Country: US (occurrence: US)
  Receive Date: 20240605
  Receipt Date: 20240606
  Transmission Date: 20240716
  Serious: No
  Sender: FDA-Public Use
  Company Number: US-SA-SAC20240530000253

PATIENT
  Sex: Male
  Weight: 151 kg

DRUGS (2)
  1. ELOCTATE [Suspect]
     Active Substance: EFMOROCTOCOG ALFA
     Indication: Factor VIII deficiency
     Dosage: 6000 U (5400- 6600), TIW
     Route: 042
     Dates: start: 201805
  2. ELOCTATE [Suspect]
     Active Substance: EFMOROCTOCOG ALFA
     Indication: Factor VIII deficiency
     Dosage: 6000 U (5400- 6600), TIW
     Route: 042
     Dates: start: 201805

REACTIONS (2)
  - Haemorrhage [Unknown]
  - Weight decreased [Unknown]
